FAERS Safety Report 13233780 (Version 1)
Quarter: 2017Q1

REPORT INFORMATION
  Report Type: Spontaneous
  Country: US (occurrence: US)
  Receive Date: 20170215
  Receipt Date: 20170215
  Transmission Date: 20170428
  Serious: Yes (Hospitalization)
  Sender: FDA-Public Use
  Company Number: US-ROCHE-1892096

PATIENT
  Age: 69 Year
  Sex: Male

DRUGS (5)
  1. ATENOLOL. [Concomitant]
     Active Substance: ATENOLOL
  2. NAPROXEN. [Concomitant]
     Active Substance: NAPROXEN
  3. VEMURAFENIB [Suspect]
     Active Substance: VEMURAFENIB
     Indication: METASTATIC MALIGNANT MELANOMA
     Route: 065
  4. VEMURAFENIB [Suspect]
     Active Substance: VEMURAFENIB
     Route: 065
  5. TADALAFIL [Concomitant]
     Active Substance: TADALAFIL

REACTIONS (3)
  - Cholestasis [Not Recovered/Not Resolved]
  - Drug-induced liver injury [Not Recovered/Not Resolved]
  - Granulomatous liver disease [Not Recovered/Not Resolved]
